FAERS Safety Report 11310745 (Version 1)
Quarter: 2015Q3

REPORT INFORMATION
  Report Type: Spontaneous
  Country: US (occurrence: US)
  Receive Date: 20150725
  Receipt Date: 20150725
  Transmission Date: 20151125
  Serious: No
  Sender: FDA-Public Use
  Company Number: US-009507513-1507USA007007

PATIENT
  Sex: Female

DRUGS (4)
  1. ASMANEX [Suspect]
     Active Substance: MOMETASONE FUROATE
     Indication: ASTHMA
     Dosage: 2 DF, QD
     Route: 055
     Dates: start: 201505, end: 2015
  2. SINGULAIR [Concomitant]
     Active Substance: MONTELUKAST SODIUM
     Route: 048
  3. CLARINEX [Concomitant]
     Active Substance: DESLORATADINE
     Route: 048
  4. ASMANEX [Suspect]
     Active Substance: MOMETASONE FUROATE
     Indication: ASTHMA
     Dosage: 2 DF, QD
     Route: 055
     Dates: start: 2015

REACTIONS (3)
  - Drug dose omission [Unknown]
  - Product container issue [Unknown]
  - Fatigue [Unknown]

NARRATIVE: CASE EVENT DATE: 2015
